FAERS Safety Report 5248696-9 (Version None)
Quarter: 2007Q1

REPORT INFORMATION
  Report Type: 
  Country: None (occurrence: None)
  Receive Date: 20070222
  Receipt Date: 20070209
  Transmission Date: 20070707
  Serious: Yes (Hospitalization)
  Sender: FDA-Public Use
  Company Number: SU-2006-005682

PATIENT
  Age: 59 Year
  Sex: Female
  Weight: 141.9759 kg

DRUGS (5)
  1. BENICAR HCT [Suspect]
     Indication: DIABETES MELLITUS
     Dosage: 40.125 MG QD PO
     Route: 048
  2. BENICAR HCT [Suspect]
     Indication: HYPERTENSION
     Dosage: 40.125 MG QD PO
     Route: 048
  3. LEVEMIR [Concomitant]
  4. ZOCOR [Concomitant]
  5. ASPIRIN [Concomitant]

REACTIONS (2)
  - PALPITATIONS [None]
  - VASCULITIS [None]
